FAERS Safety Report 6649466-7 (Version None)
Quarter: 2010Q1

REPORT INFORMATION
  Report Type: 
  Country: None (occurrence: None)
  Receive Date: 20100322
  Receipt Date: 20100311
  Transmission Date: 20100710
  Serious: Yes (Death, Hospitalization)
  Sender: FDA-Public Use
  Company Number: 2009AC000057

PATIENT
  Age: 89 Year
  Sex: Male

DRUGS (14)
  1. DIGOXIN [Suspect]
     Indication: ATRIAL FIBRILLATION
     Dosage: 0.25 MG;QD;PO
     Route: 048
     Dates: start: 20060301
  2. DIGOXIN [Suspect]
     Dosage: .25 MG;QD;PO
     Route: 048
     Dates: start: 20010201
  3. LASIX [Concomitant]
  4. SODIUM BICARBONATE [Concomitant]
  5. LISINOPRIL [Concomitant]
  6. DUONEB [Concomitant]
  7. SILVADENE [Concomitant]
  8. AUGMENTIN '125' [Concomitant]
  9. METOLAZONE [Concomitant]
  10. ASCENSIA [Concomitant]
  11. FELODIPINE [Concomitant]
  12. ASPIRIN [Concomitant]
  13. FLAGYL [Concomitant]
  14. INSULIN [Concomitant]

REACTIONS (38)
  - ANAEMIA [None]
  - ANXIETY [None]
  - AZOTAEMIA [None]
  - BLOOD CALCIUM DECREASED [None]
  - BLOOD PRESSURE DIASTOLIC DECREASED [None]
  - CARDIAC FAILURE CONGESTIVE [None]
  - CARDIOACTIVE DRUG LEVEL INCREASED [None]
  - CELLULITIS [None]
  - CONDITION AGGRAVATED [None]
  - CONFUSIONAL STATE [None]
  - DEHYDRATION [None]
  - DIABETIC NEPHROPATHY [None]
  - DIARRHOEA [None]
  - DIZZINESS [None]
  - ECONOMIC PROBLEM [None]
  - FEAR [None]
  - GLOMERULOSCLEROSIS [None]
  - HYPERKALAEMIA [None]
  - HYPERTENSIVE NEPHROPATHY [None]
  - ILL-DEFINED DISORDER [None]
  - INFECTED SKIN ULCER [None]
  - INJURY [None]
  - LOSS OF CONTROL OF LEGS [None]
  - MALNUTRITION [None]
  - PNEUMONIA [None]
  - POOR PERSONAL HYGIENE [None]
  - PRESYNCOPE [None]
  - PRURITUS [None]
  - PULMONARY OEDEMA [None]
  - REFUSAL OF TREATMENT BY PATIENT [None]
  - RENAL FAILURE [None]
  - RENAL FAILURE ACUTE [None]
  - RESPIRATORY FAILURE [None]
  - SURGERY [None]
  - SYNCOPE [None]
  - THERAPEUTIC AGENT TOXICITY [None]
  - URINARY INCONTINENCE [None]
  - VISION BLURRED [None]
